FAERS Safety Report 9327594 (Version 1)
Quarter: 2013Q2

REPORT INFORMATION
  Report Type: Spontaneous
  Country: US (occurrence: US)
  Receive Date: 20130604
  Receipt Date: 20130604
  Transmission Date: 20140414
  Serious: No
  Sender: FDA-Public Use
  Company Number: US-PFIZER INC-2013167358

PATIENT
  Age: 75 Year
  Sex: Female
  Weight: 39.91 kg

DRUGS (3)
  1. CELEBREX [Suspect]
     Indication: OSTEOPOROSIS
     Dosage: 50 MG, 2X/DAY
  2. LYRICA [Concomitant]
     Indication: FIBROMYALGIA
     Dosage: UNK
  3. NEXIUM [Concomitant]
     Dosage: 50 MG, 2X/DAY

REACTIONS (1)
  - Pain [Not Recovered/Not Resolved]
